FAERS Safety Report 5863339-9 (Version None)
Quarter: 2008Q3

REPORT INFORMATION
  Report Type: 
  Country: None (occurrence: None)
  Receive Date: 20080828
  Receipt Date: 20080820
  Transmission Date: 20090109
  Serious: Yes (Other)
  Sender: FDA-Public Use
  Company Number: PHHY2008JP18814

PATIENT
  Age: 48 Year
  Sex: Female

DRUGS (1)
  1. EXJADE [Suspect]
     Indication: IRON OVERLOAD
     Dosage: 800 MG
     Route: 048
     Dates: start: 20080718, end: 20080718

REACTIONS (1)
  - HAEMATEMESIS [None]
